FAERS Safety Report 7536062-2 (Version None)
Quarter: 2011Q2

REPORT INFORMATION
  Report Type: 
  Country: None (occurrence: None)
  Receive Date: 20110609
  Receipt Date: 20110527
  Transmission Date: 20111010
  Serious: Yes (Hospitalization)
  Sender: FDA-Public Use
  Company Number: US-ELI_LILLY_AND_COMPANY-US201004001193

PATIENT
  Sex: Female

DRUGS (3)
  1. FORTEO [Suspect]
     Indication: OSTEOPOROSIS
     Dosage: 20 UG, DAILY (1/D)
     Dates: start: 20091019
  2. FORTEO [Suspect]
     Dosage: 20 UG, QD
     Dates: start: 20110501
  3. FORTEO [Suspect]
     Dosage: 20 UG, DAILY (1/D)
     Dates: end: 20110501

REACTIONS (16)
  - CALCULUS BLADDER [None]
  - MUSCLE SPASMS [None]
  - GASTRIC PH DECREASED [None]
  - BLISTER [None]
  - INSOMNIA [None]
  - MALAISE [None]
  - CHOLELITHIASIS [None]
  - VOMITING [None]
  - DIARRHOEA [None]
  - GALLBLADDER OPERATION [None]
  - DECREASED APPETITE [None]
  - ABDOMINAL PAIN UPPER [None]
  - GASTRIC INFECTION [None]
  - PAIN IN EXTREMITY [None]
  - GASTROINTESTINAL DISORDER [None]
  - CONTUSION [None]
